FAERS Safety Report 20684350 (Version 1)
Quarter: 2022Q2

REPORT INFORMATION
  Report Type: Spontaneous
  Country: JP (occurrence: JP)
  Receive Date: 20220407
  Receipt Date: 20220407
  Transmission Date: 20220720
  Serious: Yes (Other)
  Sender: FDA-Public Use
  Company Number: JP-TAKEDA-2022TJP035491

PATIENT
  Sex: Female

DRUGS (1)
  1. ZEJULA [Suspect]
     Active Substance: NIRAPARIB
     Indication: Ovarian cancer recurrent
     Dosage: 200 MILLIGRAM, QD
     Route: 048
     Dates: start: 20210409, end: 20220325

REACTIONS (7)
  - Disseminated intravascular coagulation [Not Recovered/Not Resolved]
  - Myelodysplastic syndrome [Not Recovered/Not Resolved]
  - Renal impairment [Unknown]
  - Platelet count decreased [Not Recovered/Not Resolved]
  - Infection [Not Recovered/Not Resolved]
  - Haematuria [Unknown]
  - Malaise [Unknown]

NARRATIVE: CASE EVENT DATE: 20220310
